FAERS Safety Report 12854658 (Version 2)
Quarter: 2017Q1

REPORT INFORMATION
  Report Type: Report from Study
  Country: US (occurrence: US)
  Receive Date: 20161017
  Receipt Date: 20170324
  Transmission Date: 20170428
  Serious: Yes (Hospitalization)
  Sender: FDA-Public Use
  Company Number: US-TEVA-702944USA

PATIENT
  Sex: Female
  Weight: 97 kg

DRUGS (2)
  1. PALIPERIDONE. [Concomitant]
     Active Substance: PALIPERIDONE
     Route: 065
  2. CLOZAPINE. [Suspect]
     Active Substance: CLOZAPINE
     Indication: SCHIZOAFFECTIVE DISORDER
     Route: 065

REACTIONS (2)
  - Hallucination, auditory [Unknown]
  - Hallucination, visual [Unknown]

NARRATIVE: CASE EVENT DATE: 2016
